FAERS Safety Report 4263852-4 (Version None)
Quarter: 2004Q1

REPORT INFORMATION
  Report Type: 
  Country: None (occurrence: None)
  Receive Date: 20040106
  Receipt Date: 20030425
  Transmission Date: 20041129
  Serious: Yes (Other)
  Sender: FDA-Public Use
  Company Number: PHNU2003DE01773

PATIENT
  Age: 62 Year
  Sex: Female
  Weight: 69 kg

DRUGS (8)
  1. ZOMETA [Concomitant]
     Indication: BREAST CANCER METASTATIC
     Dosage: 4 MG, TIW
     Dates: start: 20020401
  2. VISCUM ALBUM [Concomitant]
     Indication: BREAST CANCER METASTATIC
     Route: 065
     Dates: start: 20030101
  3. DOXORUBICIN HCL [Suspect]
     Indication: BREAST CANCER METASTATIC
     Route: 065
     Dates: start: 20020401, end: 20020901
  4. CYCLOPHOSPHAMIDE [Suspect]
     Indication: BREAST CANCER METASTATIC
     Route: 065
     Dates: start: 20020401, end: 20020901
  5. TAXOL [Suspect]
     Indication: BREAST CANCER METASTATIC
     Dosage: UNK, UNK
     Dates: start: 20020401, end: 20020901
  6. FEMARA [Suspect]
     Indication: BREAST CANCER METASTATIC
     Dosage: 2.5 MG, QD
     Route: 048
     Dates: start: 20020401
  7. CALCIUM CARBONATE [Concomitant]
     Indication: BREAST CANCER METASTATIC
     Dosage: 1 DF, QD
     Route: 048
     Dates: start: 20021201
  8. CEFASEL [Concomitant]
     Indication: BREAST CANCER METASTATIC
     Dosage: 100 MG, QD
     Route: 048
     Dates: start: 20020801

REACTIONS (3)
  - ENLARGED CLITORIS [None]
  - HAIR GROWTH ABNORMAL [None]
  - VIRILISM [None]
